FAERS Safety Report 13918868 (Version 1)
Quarter: 2017Q3

REPORT INFORMATION
  Report Type: Spontaneous
  Country: US (occurrence: None)
  Receive Date: 20170828
  Receipt Date: 20170828
  Transmission Date: 20171127
  Serious: Yes (Hospitalization)
  Sender: FDA-Public Use
  Company Number: None

PATIENT
  Age: 72 Year
  Sex: Female

DRUGS (8)
  1. ZOLOFT [Concomitant]
     Active Substance: SERTRALINE HYDROCHLORIDE
  2. GENGRAF [Suspect]
     Active Substance: CYCLOSPORINE
     Indication: RENAL TRANSPLANT
     Route: 048
     Dates: start: 20091202
  3. CIPROFLOXACN [Concomitant]
     Active Substance: CIPROFLOXACIN
  4. MAGNESIUM [Concomitant]
     Active Substance: MAGNESIUM
  5. NEULASTA [Suspect]
     Active Substance: PEGFILGRASTIM
     Indication: DIFFUSE LARGE B-CELL LYMPHOMA
     Dosage: Q 21 DAYS
     Route: 058
     Dates: start: 20170428
  6. SULFAMETHOX [Concomitant]
  7. CALCIUM [Concomitant]
     Active Substance: CALCIUM
  8. CEPHALEXIN. [Concomitant]
     Active Substance: CEPHALEXIN

REACTIONS (4)
  - Spinal compression fracture [None]
  - Fall [None]
  - Dehydration [None]
  - Blood creatine increased [None]

NARRATIVE: CASE EVENT DATE: 20170807
